FAERS Safety Report 8505504-8 (Version None)
Quarter: 2012Q3

REPORT INFORMATION
  Report Type: 
  Country: None (occurrence: None)
  Receive Date: 20120712
  Receipt Date: 20120704
  Transmission Date: 20120928
  Serious: Yes (Life-Threatening, Hospitalization, Other)
  Sender: FDA-Public Use
  Company Number: DE-009507513-1207DEU000810

PATIENT

DRUGS (1)
  1. ZOELY [Suspect]
     Dosage: 1 DF, QD
     Route: 048
     Dates: start: 20120401, end: 20120601

REACTIONS (2)
  - THROMBOSIS [None]
  - PULMONARY EMBOLISM [None]
